FAERS Safety Report 23320984 (Version 1)
Quarter: 2023Q4

REPORT INFORMATION
  Report Type: Spontaneous
  Country: US (occurrence: US)
  Receive Date: 20231220
  Receipt Date: 20231220
  Transmission Date: 20240110
  Serious: No
  Sender: FDA-Public Use
  Company Number: US-GSKCCFUS-Case-01830474_AE-102327

PATIENT
  Sex: Female

DRUGS (1)
  1. BREXAFEMME [Suspect]
     Active Substance: IBREXAFUNGERP CITRATE
     Indication: Product used for unknown indication
     Dosage: UNK
     Route: 065

REACTIONS (8)
  - Feeling abnormal [Unknown]
  - Fungal infection [Unknown]
  - Malaise [Unknown]
  - Pruritus [Unknown]
  - Condition aggravated [Unknown]
  - Product dispensing error [Unknown]
  - Recalled product administered [Unknown]
  - Poor quality product administered [Unknown]
